FAERS Safety Report 6900748-0 (Version None)
Quarter: 2010Q3

REPORT INFORMATION
  Report Type: 
  Country: None (occurrence: None)
  Receive Date: 20100803
  Receipt Date: 20100722
  Transmission Date: 20110219
  Serious: Yes (Death)
  Sender: FDA-Public Use
  Company Number: TW-GENENTECH-304668

PATIENT
  Age: 55 Year
  Sex: Male

DRUGS (2)
  1. MABTHERA [Suspect]
     Indication: RHEUMATOID ARTHRITIS
     Dosage: 1000 MG, UNK
     Route: 042
     Dates: start: 20100423
  2. MABTHERA [Suspect]
     Dosage: UNK
     Route: 042
     Dates: start: 20100508

REACTIONS (1)
  - MALIGNANT NEOPLASM PROGRESSION [None]
